FAERS Safety Report 15791273 (Version 2)
Quarter: 2019Q1

REPORT INFORMATION
  Report Type: Spontaneous
  Country: JP (occurrence: JP)
  Receive Date: 20190104
  Receipt Date: 20190123
  Transmission Date: 20190417
  Serious: Yes (Death)
  Sender: FDA-Public Use
  Company Number: JP-009507513-1901JPN000221

PATIENT
  Age: 89 Year
  Sex: Female

DRUGS (2)
  1. MIYA-BM [Concomitant]
     Active Substance: CLOSTRIDIUM BUTYRICUM SPORES STRAIN M-55
     Indication: PRODUCT USED FOR UNKNOWN INDICATION
     Dosage: 120 MG/DAY, UNKNOWN FREQ.
     Route: 065
     Dates: start: 20181221, end: 20181226
  2. FIDAXOMICIN [Suspect]
     Active Substance: FIDAXOMICIN
     Indication: CLOSTRIDIUM DIFFICILE COLITIS
     Dosage: 400 MG/DAY, UNKNOWN FREQ.
     Route: 065
     Dates: start: 20181221, end: 20181226

REACTIONS (1)
  - Death [Fatal]

NARRATIVE: CASE EVENT DATE: 20181226
